FAERS Safety Report 5338147-8 (Version None)
Quarter: 2007Q2

REPORT INFORMATION
  Report Type: 
  Country: None (occurrence: None)
  Receive Date: 20070530
  Receipt Date: 20070522
  Transmission Date: 20071010
  Serious: Yes (Other)
  Sender: FDA-Public Use
  Company Number: PHFR2007MT01692

PATIENT
  Sex: Male

DRUGS (2)
  1. VOLTAREN [Suspect]
     Indication: ANALGESIC EFFECT
     Dosage: 1 X 75MG/3ML INJECTION
     Route: 030
  2. INSULIN [Concomitant]
     Indication: DIABETES MELLITUS
     Route: 065

REACTIONS (4)
  - ABSCESS [None]
  - ABSCESS DRAINAGE [None]
  - DRUG ADMINISTRATION ERROR [None]
  - SOFT TISSUE NECROSIS [None]
